FAERS Safety Report 5892246-0 (Version None)
Quarter: 2008Q3

REPORT INFORMATION
  Report Type: 
  Country: None (occurrence: None)
  Receive Date: 20080919
  Receipt Date: 20080905
  Transmission Date: 20090109
  Serious: No
  Sender: FDA-Public Use
  Company Number: 2008US004262

PATIENT
  Age: 88 Year
  Sex: Female
  Weight: 54.9 kg

DRUGS (9)
  1. ALOXI [Suspect]
     Dosage: 0.25 MG, SINGLE, INTRAVENOUS
     Route: 042
     Dates: start: 20080101, end: 20080101
  2. PLAVIX [Concomitant]
  3. ZOCOR [Concomitant]
  4. ASPIRIN [Concomitant]
  5. LASIX [Concomitant]
  6. AMARYL [Concomitant]
  7. COREG [Concomitant]
  8. COSOPT /01553801/ (DORZOLAMIDE, TIMOLOL) [Concomitant]
  9. TRAVATAN [Concomitant]

REACTIONS (4)
  - BLOOD GLUCOSE INCREASED [None]
  - BRADYCARDIA [None]
  - HYPERHIDROSIS [None]
  - HYPOTENSION [None]
